FAERS Safety Report 24585162 (Version 1)
Quarter: 2024Q4

REPORT INFORMATION
  Report Type: Spontaneous
  Country: US (occurrence: US)
  Receive Date: 20241106
  Receipt Date: 20241106
  Transmission Date: 20250115
  Serious: No
  Sender: KYOWA
  Company Number: US-KYOWAKIRIN-2024KK024741

PATIENT

DRUGS (1)
  1. POTELIGEO [Suspect]
     Active Substance: MOGAMULIZUMAB-KPKC
     Indication: Cutaneous T-cell lymphoma
     Dosage: 1 MG/KG
     Route: 065
     Dates: start: 20240711, end: 20241017

REACTIONS (1)
  - Disease progression [Unknown]
